FAERS Safety Report 8093224-6 (Version None)
Quarter: 2012Q1

REPORT INFORMATION
  Report Type: 
  Country: None (occurrence: None)
  Receive Date: 20120128
  Receipt Date: 20111024
  Transmission Date: 20120608
  Serious: No
  Sender: FDA-Public Use
  Company Number: US-ABBOTT-11P-163-0719024-00

PATIENT
  Age: 40 Year
  Sex: Female

DRUGS (2)
  1. NOVOLOG INSULIN PUMP [Concomitant]
     Indication: PRODUCT USED FOR UNKNOWN INDICATION
  2. HUMIRA [Suspect]
     Indication: PSORIASIS
     Dosage: 40 MG EVERY TWO WEEKS
     Dates: start: 20090701

REACTIONS (4)
  - THERAPEUTIC RESPONSE DECREASED [None]
  - ANXIETY [None]
  - PSORIASIS [None]
  - DRUG EFFECT DECREASED [None]
